FAERS Safety Report 26085886 (Version 1)
Quarter: 2025Q4

REPORT INFORMATION
  Report Type: Report from Study
  Country: GB (occurrence: GB)
  Receive Date: 20251125
  Receipt Date: 20251125
  Transmission Date: 20260117
  Serious: Yes (Other)
  Sender: SAMSUNG BIOEPIS
  Company Number: GB-SAMSUNG BIOEPIS-SB-2025-38943

PATIENT
  Sex: Female

DRUGS (1)
  1. PYZCHIVA [Suspect]
     Active Substance: USTEKINUMAB-TTWE
     Indication: Rheumatoid arthritis
     Dosage: ON WEEK 4 AS DIRECTED;
     Route: 058
     Dates: start: 20250826

REACTIONS (2)
  - Gastrointestinal carcinoma [Unknown]
  - Product use in unapproved indication [Unknown]
